FAERS Safety Report 8531518-8 (Version None)
Quarter: 2012Q3

REPORT INFORMATION
  Report Type: 
  Country: None (occurrence: None)
  Receive Date: 20120723
  Receipt Date: 20120719
  Transmission Date: 20120928
  Serious: Yes (Life-Threatening)
  Sender: FDA-Public Use
  Company Number: FR-PFIZER INC-2012147126

PATIENT
  Age: 5 Year
  Sex: Female
  Weight: 18 kg

DRUGS (4)
  1. PEDIATRIC ADVIL [Suspect]
     Indication: PYREXIA
  2. ACETAMINOPHEN [Suspect]
     Indication: PAIN
     Dosage: WEIGHT DOSE OF 18 KG
     Dates: start: 20120618, end: 20120618
  3. PEDIATRIC ADVIL [Suspect]
     Indication: PAIN
     Dosage: WEIGHT DOSE OF 18 KG
     Dates: start: 20120618, end: 20120618
  4. ACETAMINOPHEN [Suspect]
     Indication: PYREXIA

REACTIONS (3)
  - OEDEMA MOUTH [None]
  - OEDEMA PERIPHERAL [None]
  - URTICARIA [None]
